FAERS Safety Report 9173414 (Version 1)
Quarter: 2013Q1

REPORT INFORMATION
  Report Type: Spontaneous
  Country: US (occurrence: US)
  Receive Date: 20130320
  Receipt Date: 20130320
  Transmission Date: 20140127
  Serious: No
  Sender: FDA-Public Use
  Company Number: US-BAYER-2013-034554

PATIENT
  Age: 63 Year
  Sex: Male
  Weight: 84 kg

DRUGS (1)
  1. ALEVE TABLET [Suspect]
     Dosage: 2 DF, BID
     Route: 048
     Dates: start: 20130314

REACTIONS (2)
  - Therapeutic response unexpected [Not Recovered/Not Resolved]
  - Overdose [None]
